FAERS Safety Report 7945575-0 (Version None)
Quarter: 2011Q4

REPORT INFORMATION
  Report Type: 
  Country: None (occurrence: None)
  Receive Date: 20111125
  Receipt Date: 20111116
  Transmission Date: 20120403
  Serious: Yes (Other)
  Sender: FDA-Public Use
  Company Number: DSA_48235_2011

PATIENT
  Sex: Female

DRUGS (1)
  1. TILDIEN RETARD- DILTIAZEM HYDROCHLORIDE 90 MG [Suspect]
     Indication: PRODUCT USED FOR UNKNOWN INDICATION
     Dosage: (90 MG BID)

REACTIONS (1)
  - COELIAC DISEASE [None]
